FAERS Safety Report 19878738 (Version 2)
Quarter: 2021Q4

REPORT INFORMATION
  Report Type: Spontaneous
  Country: RU (occurrence: RU)
  Receive Date: 20210923
  Receipt Date: 20211003
  Transmission Date: 20220303
  Serious: Yes (Other)
  Sender: FDA-Public Use
  Company Number: NVSC2021RU215445

PATIENT
  Age: 54 Year
  Sex: Male

DRUGS (3)
  1. DOCETAXEL [Suspect]
     Active Substance: DOCETAXEL
     Indication: Penile cancer
     Dosage: 75 MG/M2, BY DROP INFUSION ON DAY 1 (6 CYCLES)
     Route: 042
  2. CISPLATIN [Suspect]
     Active Substance: CISPLATIN
     Indication: Penile cancer
     Dosage: 75 MG/M2, BY DROP INFUSION ON DAY 1 (6 CYCLES)
     Route: 042
  3. CAPECITABINE [Suspect]
     Active Substance: CAPECITABINE
     Indication: Penile cancer
     Dosage: 1700 MG/M2, QD ON DAYS 1-14 (6 CYCLES)
     Route: 048

REACTIONS (3)
  - Neutropenia [Unknown]
  - Febrile neutropenia [Unknown]
  - Product use in unapproved indication [Unknown]
